FAERS Safety Report 8542255-8 (Version None)
Quarter: 2012Q3

REPORT INFORMATION
  Report Type: 
  Country: None (occurrence: None)
  Receive Date: 20120726
  Receipt Date: 20111229
  Transmission Date: 20120928
  Serious: No
  Sender: FDA-Public Use
  Company Number: US-ASTRAZENECA-2011SE61438

PATIENT
  Age: 42 Year
  Sex: Female
  Weight: 63.5 kg

DRUGS (6)
  1. NEXIUM [Concomitant]
     Indication: GASTROOESOPHAGEAL REFLUX DISEASE
  2. SIMVASTATIN [Concomitant]
     Indication: BLOOD CHOLESTEROL ABNORMAL
  3. TOPIRAMATE [Concomitant]
     Indication: ANXIETY
  4. SEROQUEL [Suspect]
     Dosage: 200 MG IN MORNING AND 800 MG AT NIGHT
     Route: 048
  5. ELMIRON [Concomitant]
     Indication: CYSTITIS
  6. SEROQUEL [Suspect]
     Indication: BIPOLAR DISORDER
     Route: 048

REACTIONS (2)
  - DRUG DOSE OMISSION [None]
  - MEMORY IMPAIRMENT [None]
